FAERS Safety Report 9397580 (Version 1)
Quarter: 2013Q3

REPORT INFORMATION
  Report Type: Spontaneous
  Country: TR (occurrence: TR)
  Receive Date: 20130712
  Receipt Date: 20130712
  Transmission Date: 20140515
  Serious: No
  Sender: FDA-Public Use
  Company Number: TR-UCBSA-091155

PATIENT
  Age: 34 Year
  Sex: 0
  Weight: 58 kg

DRUGS (1)
  1. KEPPRA [Suspect]
     Indication: EPILEPSY
     Dosage: UNSPECIFIED DOSE
     Route: 048
     Dates: start: 2007, end: 20130610

REACTIONS (1)
  - Thrombocytopenia [Recovered/Resolved]
